FAERS Safety Report 6561375-0 (Version None)
Quarter: 2010Q1

REPORT INFORMATION
  Report Type: 
  Country: None (occurrence: None)
  Receive Date: 20100130
  Receipt Date: 20091016
  Transmission Date: 20100710
  Serious: No
  Sender: FDA-Public Use
  Company Number: US-ABBOTT-09P-163-0603213-00

PATIENT
  Sex: Female

DRUGS (2)
  1. HUMIRA [Suspect]
     Indication: PSORIASIS
     Dosage: DAY 8
     Dates: start: 20091007
  2. ANTIDEPRESSANT [Concomitant]
     Indication: DRUG USE FOR UNKNOWN INDICATION

REACTIONS (9)
  - CHILLS [None]
  - CONTUSION [None]
  - DRY SKIN [None]
  - MENTAL DISORDER [None]
  - NIGHT SWEATS [None]
  - PRURITUS [None]
  - PSORIASIS [None]
  - SOMNOLENCE [None]
  - VISION BLURRED [None]
